FAERS Safety Report 15770752 (Version 1)
Quarter: 2018Q4

REPORT INFORMATION
  Report Type: Spontaneous
  Country: US (occurrence: US)
  Receive Date: 20181207
  Receipt Date: 20181207
  Transmission Date: 20190205
  Serious: Yes (Hospitalization)
  Sender: FDA-Public Use
  Company Number: None

PATIENT
  Age: 64 Year
  Sex: Male
  Weight: 109.31 kg

DRUGS (3)
  1. DEXAMETHASONE. [Suspect]
     Active Substance: DEXAMETHASONE
     Dates: end: 20181124
  2. LENALIDOMIDE (CC-5013) [Suspect]
     Active Substance: LENALIDOMIDE
     Dates: end: 20181125
  3. VELCADE [Suspect]
     Active Substance: BORTEZOMIB
     Dosage: ?          OTHER DOSE:12.44MG;?
     Dates: end: 20181123

REACTIONS (3)
  - Syncope [None]
  - Orthostatic hypotension [None]
  - Face injury [None]

NARRATIVE: CASE EVENT DATE: 20181127
